FAERS Safety Report 8352852-0 (Version None)
Quarter: 2012Q2

REPORT INFORMATION
  Report Type: 
  Country: None (occurrence: None)
  Receive Date: 20120511
  Receipt Date: 20120504
  Transmission Date: 20120825
  Serious: Yes (Hospitalization)
  Sender: FDA-Public Use
  Company Number: US-BAYER-2012-009667

PATIENT
  Age: 47 Year
  Sex: Female
  Weight: 74.376 kg

DRUGS (9)
  1. YASMIN [Suspect]
     Indication: PREMENSTRUAL SYNDROME
  2. YASMIN [Suspect]
     Indication: CONTRACEPTION
     Dosage: UNK
     Dates: start: 20040501, end: 20080101
  3. DROSPIRENONE AND ETHINYL ESTRADIOL [Suspect]
     Indication: CONTRACEPTION
     Dosage: UNK
     Dates: start: 20040501, end: 20080101
  4. MULTI-VITAMIN [Concomitant]
  5. YASMIN [Suspect]
     Indication: ACNE
     Dosage: UNK
     Dates: start: 20090701, end: 20110301
  6. VITAMIN C [Concomitant]
  7. DROSPIRENONE AND ETHINYL ESTRADIOL [Suspect]
     Indication: ACNE
     Dosage: UNK
     Dates: start: 20090701, end: 20110301
  8. DROSPIRENONE AND ETHINYL ESTRADIOL [Suspect]
     Indication: PREMENSTRUAL SYNDROME
  9. CYMBALTA [Concomitant]
     Indication: ANXIETY
     Dosage: 60 MG, QD

REACTIONS (11)
  - MYOCARDIAL INFARCTION [None]
  - CHEST PAIN [None]
  - PULMONARY HYPERTENSION [None]
  - PLEURISY [None]
  - DYSPNOEA [None]
  - ANXIETY [None]
  - DEEP VEIN THROMBOSIS [None]
  - INJURY [None]
  - MENTAL DISORDER [None]
  - PULMONARY EMBOLISM [None]
  - ANHEDONIA [None]
